FAERS Safety Report 16498721 (Version 1)
Quarter: 2019Q2

REPORT INFORMATION
  Report Type: Report from Study
  Country: IN (occurrence: IN)
  Receive Date: 20190629
  Receipt Date: 20190629
  Transmission Date: 20190711
  Serious: Yes (Other)
  Sender: FDA-Public Use
  Company Number: IN-ACI HEALTHCARE LIMITED-2069982

PATIENT
  Age: 16 Year
  Sex: Female

DRUGS (6)
  1. VITAMIN D [Concomitant]
     Active Substance: VITAMIN D NOS
     Route: 065
  2. GABAPENTIN. [Suspect]
     Active Substance: GABAPENTIN
     Route: 065
  3. VITAMIN B12 [Concomitant]
     Active Substance: CYANOCOBALAMIN
     Route: 065
  4. AMYTRYPTYLINE [Suspect]
     Active Substance: AMITRIPTYLINE
     Route: 065
  5. REGULAR INSULIN [Concomitant]
     Active Substance: INSULIN NOS
     Route: 065
  6. GLARGINE INSULIN [Concomitant]
     Active Substance: INSULIN GLARGINE
     Route: 065

REACTIONS (3)
  - Autonomic neuropathy [Recovered/Resolved]
  - Diabetic retinopathy [Recovered/Resolved]
  - Retinopathy hypertensive [Recovered/Resolved]
